FAERS Safety Report 9134749 (Version 2)
Quarter: 2013Q2

REPORT INFORMATION
  Report Type: Spontaneous
  Country: US (occurrence: US)
  Receive Date: 20130304
  Receipt Date: 20130417
  Transmission Date: 20140414
  Serious: No
  Sender: FDA-Public Use
  Company Number: US-PFIZER INC-2013073482

PATIENT
  Age: 52 Year
  Sex: Female
  Weight: 97.96 kg

DRUGS (1)
  1. ZOLOFT [Suspect]
     Indication: DEPRESSION
     Dosage: HALF A TABLET TWO TIMES A DAY
     Dates: start: 2003

REACTIONS (2)
  - Hypertension [Unknown]
  - Back pain [Unknown]
